FAERS Safety Report 25541518 (Version 1)
Quarter: 2025Q3

REPORT INFORMATION
  Report Type: Report from Study
  Country: US (occurrence: US)
  Receive Date: 20250711
  Receipt Date: 20250711
  Transmission Date: 20251020
  Serious: Yes (Hospitalization)
  Sender: DECIPHERA PHARMACEUTICALS
  Company Number: US-DECIPHERA PHARMACEUTICALS LLC-2025US000811

PATIENT
  Age: 79 Year
  Sex: Female

DRUGS (1)
  1. QINLOCK [Suspect]
     Active Substance: RIPRETINIB
     Indication: Gastrointestinal stromal tumour
     Dosage: 50 MILLIGRAM, QD
     Route: 048
     Dates: end: 202506

REACTIONS (2)
  - Hospitalisation [Unknown]
  - Underdose [Unknown]
